FAERS Safety Report 14832308 (Version 1)
Quarter: 2018Q2

REPORT INFORMATION
  Report Type: Spontaneous
  Country: US (occurrence: US)
  Receive Date: 20180501
  Receipt Date: 20180501
  Transmission Date: 20180711
  Serious: Yes (Hospitalization, Other)
  Sender: FDA-Public Use
  Company Number: US-BAYER-2018-080844

PATIENT
  Age: 68 Year
  Sex: Female
  Weight: 56.69 kg

DRUGS (12)
  1. LOTRISONE [Concomitant]
     Active Substance: BETAMETHASONE DIPROPIONATE\CLOTRIMAZOLE
  2. CARBAMAZEPINE. [Suspect]
     Active Substance: CARBAMAZEPINE
     Dosage: 400 MG, TID
     Route: 048
  3. CLORAZEPATE [Concomitant]
     Active Substance: CLORAZEPATE DIPOTASSIUM
     Dosage: 7.5 MG, UNK
  4. SENNA [Suspect]
     Active Substance: SENNA LEAF\SENNOSIDES\SENNOSIDES A AND B
     Dosage: 17.6 MG, QD
  5. METAMUCIL [Suspect]
     Active Substance: PLANTAGO SEED
     Dosage: 2100 MG, UNK
     Route: 048
  6. MIRALAX [Suspect]
     Active Substance: POLYETHYLENE GLYCOL 3350
     Dosage: 17 G, QD
  7. ATENOLOL. [Concomitant]
     Active Substance: ATENOLOL
     Dosage: 25 MG, UNK
  8. MECLIZINE [Concomitant]
     Active Substance: MECLIZINE HYDROCHLORIDE
  9. HYDROCHLOROTHIAZIDE. [Suspect]
     Active Substance: HYDROCHLOROTHIAZIDE
     Dosage: 25 MG, QD
     Route: 048
  10. LEVSIN [Concomitant]
     Active Substance: HYOSCYAMINE SULFATE
  11. LATANOPROST. [Concomitant]
     Active Substance: LATANOPROST
  12. PROTONIX [Concomitant]
     Active Substance: PANTOPRAZOLE SODIUM

REACTIONS (46)
  - Upper-airway cough syndrome [None]
  - Asthenia [None]
  - Weight increased [None]
  - Influenza like illness [None]
  - Visual impairment [None]
  - Contusion [None]
  - Cardiac murmur [None]
  - Urine odour abnormal [None]
  - Drug abuse [None]
  - Skin lesion [None]
  - Dysarthria [None]
  - Skin discolouration [None]
  - Hyperhidrosis [None]
  - Stevens-Johnson syndrome [None]
  - Tremor [None]
  - Nasal ulcer [None]
  - Anal incontinence [None]
  - Balance disorder [None]
  - Temperature regulation disorder [None]
  - Nausea [None]
  - Feeling hot [None]
  - Urinary incontinence [None]
  - Oral mucosal exfoliation [None]
  - Seizure [None]
  - Night sweats [None]
  - Dizziness [None]
  - Exfoliative rash [None]
  - Micturition urgency [None]
  - Cachexia [None]
  - Feeling abnormal [None]
  - Eating disorder [None]
  - Hypocalcaemia [None]
  - Onychoclasis [None]
  - Rash macular [None]
  - Seborrhoea [None]
  - White blood cell count decreased [None]
  - Dehydration [None]
  - Mental status changes [None]
  - Skin fissures [None]
  - Neck pain [None]
  - Gait disturbance [None]
  - Peripheral swelling [None]
  - Swelling face [None]
  - Fatigue [None]
  - Abdominal pain [None]
  - Hot flush [None]
